FAERS Safety Report 11423283 (Version 2)
Quarter: 2015Q3

REPORT INFORMATION
  Report Type: Spontaneous
  Country: US (occurrence: US)
  Receive Date: 20150827
  Receipt Date: 20150901
  Transmission Date: 20151125
  Serious: No
  Sender: FDA-Public Use
  Company Number: US-009507513-1508USA010992

PATIENT
  Age: 28 Year
  Sex: Female

DRUGS (1)
  1. NEXPLANON [Suspect]
     Active Substance: ETONOGESTREL
     Indication: CONTRACEPTION
     Dosage: EVERY 3 YEARS
     Route: 059
     Dates: start: 20120720

REACTIONS (4)
  - Incorrect drug administration duration [Unknown]
  - Pain in extremity [Unknown]
  - Pyrexia [Unknown]
  - Expired product administered [Unknown]

NARRATIVE: CASE EVENT DATE: 20150721
